FAERS Safety Report 9808188 (Version 1)
Quarter: 2014Q1

REPORT INFORMATION
  Report Type: Spontaneous
  Country: US (occurrence: US)
  Receive Date: 20140110
  Receipt Date: 20140110
  Transmission Date: 20141002
  Serious: No
  Sender: FDA-Public Use
  Company Number: US-ROXANE LABORATORIES, INC.-2014-RO-00016RO

PATIENT
  Age: 49 Year
  Sex: Female

DRUGS (1)
  1. MORPHINE [Suspect]

REACTIONS (1)
  - Pruritus [Unknown]
